FAERS Safety Report 7056867-4 (Version None)
Quarter: 2010Q4

REPORT INFORMATION
  Report Type: 
  Country: None (occurrence: None)
  Receive Date: 20101022
  Receipt Date: 20101013
  Transmission Date: 20110411
  Serious: No
  Sender: FDA-Public Use
  Company Number: US-JNJFOC-20101004204

PATIENT
  Sex: Female
  Weight: 71.67 kg

DRUGS (5)
  1. FENTANYL CITRATE [Suspect]
     Indication: BACK PAIN
     Dosage: NDC#0781-7243-55
     Route: 062
  2. LYRICA [Concomitant]
     Indication: FIBROMYALGIA
     Route: 048
  3. LYRICA [Concomitant]
     Dosage: 3 CAPSULES AT NIGHT
     Route: 048
  4. LANTUS [Concomitant]
     Indication: DIABETES MELLITUS
     Dosage: 45 UNITS DAILY
     Route: 058
  5. HUMALOG [Concomitant]
     Indication: DIABETES MELLITUS
     Route: 058

REACTIONS (4)
  - APPLICATION SITE VESICLES [None]
  - DRUG INEFFECTIVE [None]
  - PRODUCT ADHESION ISSUE [None]
  - WRONG TECHNIQUE IN DRUG USAGE PROCESS [None]
